FAERS Safety Report 7391491-5 (Version None)
Quarter: 2011Q2

REPORT INFORMATION
  Report Type: 
  Country: None (occurrence: None)
  Receive Date: 20110404
  Receipt Date: 20100124
  Transmission Date: 20111010
  Serious: Yes (Death, Hospitalization, Other)
  Sender: FDA-Public Use
  Company Number: US-BAYER-201012132NA

PATIENT
  Sex: Female
  Weight: 84 kg

DRUGS (16)
  1. HEPARIN SODIUM [Concomitant]
     Indication: PRODUCT USED FOR UNKNOWN INDICATION
     Dosage: 5000 U, UNK
     Route: 042
  2. TRASYLOL [Suspect]
     Indication: MITRAL VALVE REPLACEMENT
     Dosage: 0.5 ML TEST DOSE
     Route: 042
     Dates: start: 20011224
  3. RED BLOOD CELLS [Concomitant]
     Dosage: 3 U, UNK
     Route: 042
  4. MIDAZOLAM HCL [Concomitant]
     Indication: PRODUCT USED FOR UNKNOWN INDICATION
     Route: 042
  5. FENTANYL [Concomitant]
     Indication: PRODUCT USED FOR UNKNOWN INDICATION
     Dosage: 50 MCG/ML
     Route: 042
  6. CISATRACURIUM [Concomitant]
     Indication: PRODUCT USED FOR UNKNOWN INDICATION
     Route: 042
  7. FRESH FROZEN PLASMA [Concomitant]
     Dosage: 2 U, UNK
     Dates: start: 20011224
  8. TRASYLOL [Suspect]
     Dosage: 100 ML LOADING DOSE
     Route: 042
     Dates: end: 20011224
  9. RED BLOOD CELLS [Concomitant]
     Indication: PRODUCT USED FOR UNKNOWN INDICATION
     Dosage: 6 U, UNK
     Route: 042
     Dates: start: 20011224
  10. DOBUTAMINE [Concomitant]
     Indication: PRODUCT USED FOR UNKNOWN INDICATION
     Route: 042
  11. MILRINONE [Concomitant]
     Indication: PRODUCT USED FOR UNKNOWN INDICATION
     Route: 042
  12. TRASYLOL [Suspect]
     Dosage: 25 ML/HR
     Route: 042
     Dates: start: 20011224, end: 20011224
  13. PLATELETS [Concomitant]
     Indication: PRODUCT USED FOR UNKNOWN INDICATION
     Dosage: 1 U, UNK
     Route: 042
     Dates: start: 20011224
  14. DOPAMINE HCL [Concomitant]
     Indication: PRODUCT USED FOR UNKNOWN INDICATION
     Route: 042
  15. AMPHOTERICIN B [Concomitant]
  16. EPINEPHRINE [Concomitant]
     Indication: PRODUCT USED FOR UNKNOWN INDICATION
     Route: 042

REACTIONS (13)
  - MYOCARDIAL INFARCTION [None]
  - PAIN [None]
  - DEATH [None]
  - RENAL IMPAIRMENT [None]
  - MULTI-ORGAN FAILURE [None]
  - STRESS [None]
  - ANXIETY [None]
  - FEAR [None]
  - RENAL FAILURE [None]
  - EMOTIONAL DISTRESS [None]
  - RENAL INJURY [None]
  - UNEVALUABLE EVENT [None]
  - INJURY [None]
